FAERS Safety Report 15300247 (Version 2)
Quarter: 2018Q3

REPORT INFORMATION
  Report Type: Spontaneous
  Country: GB (occurrence: GB)
  Receive Date: 20180821
  Receipt Date: 20180828
  Transmission Date: 20181010
  Serious: Yes (Other)
  Sender: FDA-Public Use
  Company Number: GB-ALKEM LABORATORIES LIMITED-GB-ALKEM-2018-06617

PATIENT
  Age: 70 Year
  Sex: Female

DRUGS (2)
  1. CEFUROXIME AXETIL. [Suspect]
     Active Substance: CEFUROXIME AXETIL
     Indication: PRODUCT USED FOR UNKNOWN INDICATION
     Dosage: APPROXIMATELY 62.5 MG (APPROXIMATELY 0.5 ML) INTRACAMERAL INJECTION
     Route: 031
  2. TRIAMCINOLONE ACETONIDE. [Suspect]
     Active Substance: TRIAMCINOLONE ACETONIDE
     Indication: PRODUCT USED FOR UNKNOWN INDICATION
     Dosage: 4.0 MG, IN 0.1 ML, INTRAVITREALLY
     Route: 031

REACTIONS (5)
  - Incorrect route of drug administration [Unknown]
  - Toxicity to various agents [Unknown]
  - Treatment failure [Unknown]
  - Macular ischaemia [Unknown]
  - Accidental overdose [Unknown]
